FAERS Safety Report 9998309 (Version 2)
Quarter: 2014Q1

REPORT INFORMATION
  Report Type: Spontaneous
  Country: US (occurrence: US)
  Receive Date: 20140312
  Receipt Date: 20140312
  Transmission Date: 20141002
  Serious: Yes (Other)
  Sender: FDA-Public Use
  Company Number: US-009507513-1403USA004900

PATIENT
  Sex: Female

DRUGS (1)
  1. FOSAMAX [Suspect]
     Dosage: UNK
     Route: 048
     Dates: end: 2009

REACTIONS (3)
  - Knee arthroplasty [Unknown]
  - Drug hypersensitivity [Unknown]
  - Skeletal injury [Recovering/Resolving]
